FAERS Safety Report 6032517-0 (Version None)
Quarter: 2009Q1

REPORT INFORMATION
  Report Type: 
  Country: None (occurrence: None)
  Receive Date: 20090109
  Receipt Date: 20081029
  Transmission Date: 20090719
  Serious: No
  Sender: FDA-Public Use
  Company Number: A0754074A

PATIENT
  Age: 57 Year
  Sex: Female

DRUGS (4)
  1. TYKERB [Suspect]
     Indication: BREAST CANCER
     Dosage: 5TAB PER DAY
     Route: 048
     Dates: start: 20080101
  2. XELODA [Concomitant]
  3. COMPAZINE [Concomitant]
  4. BLOOD PRESSURE MED [Concomitant]

REACTIONS (5)
  - DYSSTASIA [None]
  - PARAESTHESIA [None]
  - POOR QUALITY SLEEP [None]
  - PRURITUS [None]
  - RASH [None]
